FAERS Safety Report 9178069 (Version 1)
Quarter: 2013Q1

REPORT INFORMATION
  Report Type: Spontaneous
  Country: US (occurrence: US)
  Receive Date: 20130321
  Receipt Date: 20130321
  Transmission Date: 20140127
  Serious: Yes (Hospitalization, Other)
  Sender: FDA-Public Use
  Company Number: US-ASTRAZENECA-2013SE16544

PATIENT
  Age: 83 Year
  Sex: Female
  Weight: 70.3 kg

DRUGS (5)
  1. NEXIUM [Suspect]
     Indication: GASTROOESOPHAGEAL REFLUX DISEASE
     Route: 048
  2. MOBIC [Concomitant]
     Indication: ARTHRITIS
     Route: 048
  3. POTASSIUM [Concomitant]
     Indication: SUPPLEMENTATION THERAPY
     Route: 048
  4. SYNTHROID [Concomitant]
     Indication: THYROID DISORDER
     Dosage: 137MG, DAILY
  5. BUMEX GENERIC [Concomitant]
     Dosage: 2MG, DAILY

REACTIONS (7)
  - Thyroid neoplasm [Unknown]
  - Post procedural complication [Unknown]
  - Abasia [Unknown]
  - Body height decreased [Unknown]
  - Regurgitation [Unknown]
  - Fluid retention [Unknown]
  - Intentional drug misuse [Unknown]
